FAERS Safety Report 10673698 (Version 1)
Quarter: 2014Q4

REPORT INFORMATION
  Report Type: Spontaneous
  Country: FR (occurrence: None)
  Receive Date: 20141222
  Receipt Date: 20141222
  Transmission Date: 20150529
  Serious: Yes (Hospitalization)
  Sender: FDA-Public Use
  Company Number: NSR_01734_2014

PATIENT
  Age: 35 Year
  Sex: Male

DRUGS (5)
  1. ESCITALOPRAM [Concomitant]
     Active Substance: ESCITALOPRAM OXALATE
  2. AMITRIPTYLINE [Concomitant]
     Active Substance: AMITRIPTYLINE
  3. BENZODIAZEPINE DERIVATIVES [Concomitant]
     Active Substance: BENZODIAZEPINE
  4. BACLOFEN (BACLOFEN) [Suspect]
     Active Substance: BACLOFEN
     Indication: ALCOHOL USE
     Dosage: 240MG DAILY (OVER 3 MONTHS)
  5. ALPRAZOLAM. [Concomitant]
     Active Substance: ALPRAZOLAM

REACTIONS (15)
  - Sinus tachycardia [None]
  - Hyperhidrosis [None]
  - Neutrophilia [None]
  - Alcohol withdrawal syndrome [None]
  - Drug screen positive [None]
  - Leukocytosis [None]
  - Hepatocellular injury [None]
  - Alcohol abuse [None]
  - Confusional state [None]
  - Hallucination, visual [None]
  - Off label use [None]
  - Blood pressure increased [None]
  - Tremor [None]
  - Drug withdrawal syndrome [None]
  - Drug ineffective [None]
